FAERS Safety Report 17947815 (Version 1)
Quarter: 2020Q2

REPORT INFORMATION
  Report Type: Spontaneous
  Country: US (occurrence: US)
  Receive Date: 20200625
  Receipt Date: 20200625
  Transmission Date: 20200714
  Serious: No
  Sender: FDA-Public Use
  Company Number: US-NOVOPROD-709614

PATIENT
  Sex: Female

DRUGS (1)
  1. OZEMPIC [Suspect]
     Active Substance: SEMAGLUTIDE
     Indication: PRODUCT USED FOR UNKNOWN INDICATION
     Dosage: UNK
     Route: 058

REACTIONS (7)
  - Crying [Unknown]
  - Emotional disorder [Unknown]
  - Ill-defined disorder [Unknown]
  - Headache [Unknown]
  - Abdominal distension [Unknown]
  - Diarrhoea [Unknown]
  - Nausea [Unknown]
